FAERS Safety Report 12311118 (Version 1)
Quarter: 2016Q2

REPORT INFORMATION
  Report Type: Spontaneous
  Country: US (occurrence: US)
  Receive Date: 20160427
  Receipt Date: 20160427
  Transmission Date: 20160815
  Serious: Yes (Other)
  Sender: FDA-Public Use
  Company Number: US-PFIZER INC-2016229907

PATIENT
  Age: 30 Year
  Sex: Female
  Weight: 100 kg

DRUGS (1)
  1. DEPO-PROVERA [Suspect]
     Active Substance: MEDROXYPROGESTERONE ACETATE
     Indication: CONTRACEPTION
     Dosage: 150 MG, SINGLE (ONCE)
     Dates: start: 20160217, end: 20160217

REACTIONS (2)
  - Unintended pregnancy [Unknown]
  - Drug ineffective [Unknown]
